FAERS Safety Report 11970099 (Version 1)
Quarter: 2016Q1

REPORT INFORMATION
  Report Type: Spontaneous
  Country: GR (occurrence: GR)
  Receive Date: 20160128
  Receipt Date: 20160128
  Transmission Date: 20160526
  Serious: Yes (Death, Hospitalization, Disabling, Other)
  Sender: FDA-Public Use
  Company Number: GR-B.I. PHARMACEUTICALS,INC./RIDGEFIELD-2016-BI-05029GB

PATIENT
  Age: 75 Year
  Sex: Male

DRUGS (5)
  1. PRADAXA [Suspect]
     Active Substance: DABIGATRAN ETEXILATE MESYLATE
     Indication: ATRIAL FIBRILLATION
     Dosage: 220 MG
     Route: 048
     Dates: end: 20151208
  2. LOBIVON [Concomitant]
     Active Substance: NEBIVOLOL HYDROCHLORIDE
     Indication: HYPERTENSION
     Route: 065
  3. PRETERAX [Concomitant]
     Active Substance: INDAPAMIDE\PERINDOPRIL
     Indication: HYPERTENSION
     Route: 065
  4. VASEXTEN [Concomitant]
     Active Substance: BARNIDIPINE
     Indication: HYPERTENSION
     Route: 065
  5. SYMBICORT [Concomitant]
     Active Substance: BUDESONIDE\FORMOTEROL FUMARATE DIHYDRATE
     Indication: CHRONIC OBSTRUCTIVE PULMONARY DISEASE
     Route: 065

REACTIONS (5)
  - Hemiplegia [Not Recovered/Not Resolved]
  - Cerebral haemorrhage [Not Recovered/Not Resolved]
  - Respiratory tract infection [Not Recovered/Not Resolved]
  - Haemorrhagic stroke [Fatal]
  - Deep vein thrombosis [Not Recovered/Not Resolved]

NARRATIVE: CASE EVENT DATE: 201512
